FAERS Safety Report 6916642-5 (Version None)
Quarter: 2010Q3

REPORT INFORMATION
  Report Type: 
  Country: None (occurrence: None)
  Receive Date: 20100809
  Receipt Date: 20100809
  Transmission Date: 20110219
  Serious: Yes (Hospitalization)
  Sender: FDA-Public Use
  Company Number: None

PATIENT
  Sex: Male

DRUGS (12)
  1. RANIBIZUMAB 0.5 MG GENENTECH LUCENTIS [Suspect]
     Indication: MACULAR DEGENERATION
     Dosage: 0.05 ML Q4W IV
     Route: 042
     Dates: start: 20091105
  2. RANIBIZUMAB 0.5 MG GENENTECH LUCENTIS [Suspect]
     Indication: MACULAR DEGENERATION
     Dosage: 0.05 ML Q4W IV
     Route: 042
     Dates: start: 20091215
  3. RANIBIZUMAB 0.5 MG GENENTECH LUCENTIS [Suspect]
     Indication: MACULAR DEGENERATION
     Dosage: 0.05 ML Q4W IV
     Route: 042
     Dates: start: 20100112
  4. RANIBIZUMAB 0.5 MG GENENTECH LUCENTIS [Suspect]
     Indication: MACULAR DEGENERATION
     Dosage: 0.05 ML Q4W IV
     Route: 042
     Dates: start: 20100210
  5. RANIBIZUMAB 0.5 MG GENENTECH LUCENTIS [Suspect]
     Indication: MACULAR DEGENERATION
     Dosage: 0.05 ML Q4W IV
     Route: 042
     Dates: start: 20100310
  6. RANIBIZUMAB 0.5 MG GENENTECH LUCENTIS [Suspect]
     Indication: MACULAR DEGENERATION
     Dosage: 0.05 ML Q4W IV
     Route: 042
     Dates: start: 20100419
  7. RANIBIZUMAB 0.5 MG GENENTECH LUCENTIS [Suspect]
     Indication: MACULAR DEGENERATION
     Dosage: 0.05 ML Q4W IV
     Route: 042
     Dates: start: 20100701
  8. RANIBIZUMAB 0.5 MG GENENTECH LUCENTIS [Suspect]
     Indication: MACULAR DEGENERATION
     Dosage: 0.05 ML Q4W IV
     Route: 042
     Dates: start: 20100805
  9. RANIBIZUMAB 0.5 MG GENENTECH [Suspect]
  10. DIOVAN [Concomitant]
  11. FELODIPINE [Concomitant]
  12. ALLOPURINOL [Concomitant]

REACTIONS (1)
  - CORONARY ARTERY DISEASE [None]
